FAERS Safety Report 15608038 (Version 5)
Quarter: 2019Q2

REPORT INFORMATION
  Report Type: Report from Study
  Country: TW (occurrence: TW)
  Receive Date: 20181112
  Receipt Date: 20190401
  Transmission Date: 20190711
  Serious: Yes (Death, Life-Threatening, Hospitalization, Other)
  Sender: FDA-Public Use
  Company Number: TW-JNJFOC-20180930600

PATIENT
  Age: 64 Year
  Sex: Female
  Weight: 57 kg

DRUGS (5)
  1. STELARA [Suspect]
     Active Substance: USTEKINUMAB
     Indication: PSORIASIS
     Dosage: 5TH DOSE
     Route: 058
     Dates: start: 20171206
  2. METHOTREXATE. [Concomitant]
     Active Substance: METHOTREXATE
     Route: 065
  3. STELARA [Suspect]
     Active Substance: USTEKINUMAB
     Indication: PSORIASIS
     Route: 058
     Dates: start: 20180328
  4. STELARA [Suspect]
     Active Substance: USTEKINUMAB
     Indication: PSORIASIS
     Route: 058
     Dates: start: 20180103
  5. STELARA [Suspect]
     Active Substance: USTEKINUMAB
     Indication: PSORIASIS
     Route: 058
     Dates: start: 20180620

REACTIONS (18)
  - Peritonitis bacterial [Unknown]
  - Hepatic cirrhosis [Unknown]
  - Hand fracture [Unknown]
  - Streptococcal infection [Unknown]
  - Abscess [Unknown]
  - Interferon gamma release assay positive [Not Recovered/Not Resolved]
  - Oedema peripheral [Unknown]
  - Joint abscess [Unknown]
  - Delirium [Unknown]
  - Psoriasis [Unknown]
  - Abdominal distension [Unknown]
  - Hepatic angiosarcoma [Fatal]
  - Fall [Unknown]
  - Large intestine polyp [Unknown]
  - Pleural effusion [Unknown]
  - Acute kidney injury [Unknown]
  - Pain in extremity [Unknown]
  - Portal hypertensive gastropathy [Unknown]

NARRATIVE: CASE EVENT DATE: 2018
